FAERS Safety Report 19270627 (Version 2)
Quarter: 2021Q4

REPORT INFORMATION
  Report Type: Spontaneous
  Country: US (occurrence: US)
  Receive Date: 20210518
  Receipt Date: 20211229
  Transmission Date: 20220303
  Serious: No
  Sender: FDA-Public Use
  Company Number: US-MYLANLABS-2021M1026606

PATIENT
  Sex: Male
  Weight: 77.09 kg

DRUGS (1)
  1. MUSE [Suspect]
     Active Substance: ALPROSTADIL
     Indication: Erectile dysfunction
     Dosage: 500 MICROGRAM
     Route: 066

REACTIONS (2)
  - Administration site pain [Recovering/Resolving]
  - Product label issue [Unknown]
